FAERS Safety Report 15402383 (Version 3)
Quarter: 2019Q1

REPORT INFORMATION
  Report Type: Report from Study
  Country: None (occurrence: US)
  Receive Date: 20180919
  Receipt Date: 20190321
  Transmission Date: 20190417
  Serious: Yes (Hospitalization)
  Sender: FDA-Public Use
  Company Number: US-ABBVIE-18K-163-2486395-00

PATIENT
  Sex: Female

DRUGS (1)
  1. HUMIRA [Suspect]
     Active Substance: ADALIMUMAB
     Indication: COLITIS ULCERATIVE
     Route: 058

REACTIONS (6)
  - Blood iron decreased [Unknown]
  - White blood cell count increased [Recovering/Resolving]
  - Rectal haemorrhage [Recovering/Resolving]
  - Nasopharyngitis [Recovering/Resolving]
  - Haemoglobin decreased [Recovering/Resolving]
  - Escherichia infection [Recovering/Resolving]
